FAERS Safety Report 8268677 (Version 2)
Quarter: 2012Q4

REPORT INFORMATION
  Report Type: Spontaneous
  Country: GB (occurrence: None)
  Receive Date: 20111122
  Receipt Date: 20121114
  Transmission Date: 20130627
  Serious: Yes (Death)
  Sender: FDA-Public Use
  Company Number: 1110503

PATIENT
  Sex: Male

DRUGS (3)
  1. MEROPENEM [Suspect]
     Indication: PRODUCT USED FOR UNKNOWN INDICATION
  2. PIPERACILLIN AND TAZOBACTAM [Suspect]
     Indication: PRODUCT USED FOR UNKNOWN INDICATION
  3. TIGECYCLINE [Concomitant]

REACTIONS (3)
  - Drug ineffective [None]
  - Malaise [None]
  - Concomitant disease progression [None]
